FAERS Safety Report 7088706-X (Version None)
Quarter: 2010Q4

REPORT INFORMATION
  Report Type: 
  Country: None (occurrence: None)
  Receive Date: 20101108
  Receipt Date: 20101027
  Transmission Date: 20110411
  Serious: Yes (Other)
  Sender: FDA-Public Use
  Company Number: US-US-EMD SERONO, INC.-430049K09USA

PATIENT
  Sex: Male

DRUGS (1)
  1. NOVANTRONE [Suspect]
     Indication: MULTIPLE SCLEROSIS
     Route: 065
     Dates: end: 20050101

REACTIONS (2)
  - CARDIAC DISORDER [None]
  - DIABETES MELLITUS [None]
